FAERS Safety Report 8771144 (Version 1)
Quarter: 2012Q4

REPORT INFORMATION
  Report Type: 
  Country: NO (occurrence: NO)
  Receive Date: 20120907
  Receipt Date: 20120907
  Transmission Date: 20130627
  Serious: Yes (Other)
  Sender: FDA-Public Use
  Company Number: NO-TEVA-357403ISR

PATIENT
  Age: 73 Year
  Sex: Female

DRUGS (2)
  1. OXALIPLATIN [Suspect]
  2. FLUOROURACIL [Suspect]

REACTIONS (3)
  - Dyspnoea [Unknown]
  - Dysarthria [Unknown]
  - Diplegia [Unknown]
